FAERS Safety Report 10776565 (Version 10)
Quarter: 2020Q1

REPORT INFORMATION
  Report Type: Report from Study
  Country: US (occurrence: US)
  Receive Date: 20150209
  Receipt Date: 20200306
  Transmission Date: 20200409
  Serious: Yes (Hospitalization, Other)
  Sender: FDA-Public Use
  Company Number: US-SA-2015SA010233

PATIENT
  Age: 57 Year
  Sex: Female

DRUGS (11)
  1. TERIFLUNOMIDE. [Suspect]
     Active Substance: TERIFLUNOMIDE
     Indication: MULTIPLE SCLEROSIS
     Dosage: 14 MG,QD
     Route: 048
     Dates: start: 2012
  2. TERIFLUNOMIDE. [Suspect]
     Active Substance: TERIFLUNOMIDE
     Dosage: 14 MG, QD
     Route: 048
  3. LEXAPRO [Concomitant]
     Active Substance: ESCITALOPRAM OXALATE
     Dosage: UNK
  4. CYMBALTA [Concomitant]
     Active Substance: DULOXETINE HYDROCHLORIDE
     Dosage: UNK
  5. TERIFLUNOMIDE. [Suspect]
     Active Substance: TERIFLUNOMIDE
     Dosage: 14 MG,QD
     Route: 048
     Dates: start: 20141201, end: 20150415
  6. PREDNISONE. [Concomitant]
     Active Substance: PREDNISONE
     Indication: SYSTEMIC LUPUS ERYTHEMATOSUS
     Dosage: UNK
  7. DULERA [Concomitant]
     Active Substance: FORMOTEROL FUMARATE DIHYDRATE\MOMETASONE FUROATE
     Dosage: UNK
     Dates: start: 2016
  8. MORPHINE [Concomitant]
     Active Substance: MORPHINE
     Dosage: UNK
  9. TERIFLUNOMIDE. [Suspect]
     Active Substance: TERIFLUNOMIDE
     Dosage: 14 MG,QD
     Route: 048
     Dates: start: 20170112, end: 201705
  10. DILAUDID [Concomitant]
     Active Substance: HYDROMORPHONE HYDROCHLORIDE
     Dosage: UNK
  11. TERIFLUNOMIDE. [Suspect]
     Active Substance: TERIFLUNOMIDE
     Dosage: 14 MG,QD
     Route: 048
     Dates: start: 20150728

REACTIONS (34)
  - Pneumonia fungal [Unknown]
  - Muscle spasms [Unknown]
  - Back pain [Unknown]
  - Surgery [Unknown]
  - Headache [Recovering/Resolving]
  - Swelling [Recovered/Resolved]
  - Abdominal discomfort [Unknown]
  - Headache [Recovered/Resolved]
  - Malaise [Unknown]
  - Multiple sclerosis relapse [Not Recovered/Not Resolved]
  - Gait disturbance [Unknown]
  - Skin mass [Recovered/Resolved]
  - Stress [Unknown]
  - Bronchitis [Recovered/Resolved]
  - Pneumonia bacterial [Unknown]
  - Spinal cord injury lumbar [Recovered/Resolved]
  - Central nervous system lesion [Unknown]
  - Fatigue [Recovering/Resolving]
  - Nausea [Unknown]
  - Neoplasm malignant [Unknown]
  - Cerebrospinal fluid leakage [Recovering/Resolving]
  - Muscular weakness [Unknown]
  - Fall [Recovered/Resolved]
  - Tearfulness [Unknown]
  - Pain [Unknown]
  - Multiple sclerosis relapse [Not Recovered/Not Resolved]
  - Malaise [Not Recovered/Not Resolved]
  - Hypoaesthesia [Not Recovered/Not Resolved]
  - Migraine [Unknown]
  - Malaise [Recovered/Resolved]
  - Colitis [Unknown]
  - Malaise [Unknown]
  - Neuralgia [Unknown]
  - Drug hypersensitivity [Not Recovered/Not Resolved]

NARRATIVE: CASE EVENT DATE: 2015
